FAERS Safety Report 7864844-6 (Version None)
Quarter: 2011Q4

REPORT INFORMATION
  Report Type: 
  Country: None (occurrence: None)
  Receive Date: 20111028
  Receipt Date: 20100902
  Transmission Date: 20120403
  Serious: No
  Sender: FDA-Public Use
  Company Number: US-GLAXOSMITHKLINE-A0879250A

PATIENT
  Sex: Female

DRUGS (3)
  1. ADVAIR DISKUS 100/50 [Suspect]
     Indication: ASTHMA
     Dosage: 1PUFF TWICE PER DAY
     Route: 055
     Dates: start: 20100801, end: 20100818
  2. ALBUTEROL [Concomitant]
  3. DECADRON [Concomitant]

REACTIONS (14)
  - GASTROOESOPHAGEAL REFLUX DISEASE [None]
  - CHEST PAIN [None]
  - DYSPNOEA [None]
  - INITIAL INSOMNIA [None]
  - DYSPHEMIA [None]
  - DISTURBANCE IN ATTENTION [None]
  - DYSSTASIA [None]
  - DIZZINESS [None]
  - SOMNOLENCE [None]
  - VISION BLURRED [None]
  - RESTLESSNESS [None]
  - MYOPIA [None]
  - PAIN IN EXTREMITY [None]
  - ATAXIA [None]
